FAERS Safety Report 5175585-0 (Version None)
Quarter: 2006Q4

REPORT INFORMATION
  Report Type: 
  Country: None (occurrence: None)
  Receive Date: 20061215
  Receipt Date: 20061102
  Transmission Date: 20070319
  Serious: Yes (Hospitalization, Disabling)
  Sender: FDA-Public Use
  Company Number: JP-BRISTOL-MYERS SQUIBB COMPANY-13568746

PATIENT
  Age: 61 Year
  Sex: Female

DRUGS (5)
  1. TAXOL [Suspect]
     Indication: OVARIAN CANCER
     Route: 041
     Dates: start: 20061019, end: 20061019
  2. PARAPLATIN [Suspect]
     Indication: OVARIAN CANCER
     Route: 041
     Dates: start: 20061019, end: 20061019
  3. LEVODOPA + BENSERAZIDE HCL [Concomitant]
     Route: 048
  4. ARTANE [Concomitant]
     Route: 048
  5. CABASER [Concomitant]
     Route: 048

REACTIONS (2)
  - CEREBRAL INFARCTION [None]
  - INAPPROPRIATE ANTIDIURETIC HORMONE SECRETION [None]
